FAERS Safety Report 10586844 (Version 1)
Quarter: 2014Q4

REPORT INFORMATION
  Report Type: Spontaneous
  Country: US (occurrence: US)
  Receive Date: 20141117
  Receipt Date: 20141117
  Transmission Date: 20150529
  Serious: No
  Sender: FDA-Public Use
  Company Number: US-009507513-1411USA007447

PATIENT
  Weight: 62.59 kg

DRUGS (2)
  1. NEXPLANON [Suspect]
     Active Substance: ETONOGESTREL
     Dosage: ONE ROD INSERTED EVERY THREE YEARS
     Route: 059
     Dates: start: 20141103, end: 20141103
  2. NEXPLANON [Suspect]
     Active Substance: ETONOGESTREL
     Dosage: IN THE ARM, ONE ROD INSERTED EVERY THREE YEARS
     Route: 059
     Dates: start: 20141103

REACTIONS (3)
  - Device difficult to use [Recovered/Resolved]
  - Product quality issue [Unknown]
  - No adverse event [Unknown]

NARRATIVE: CASE EVENT DATE: 20141103
